FAERS Safety Report 24952427 (Version 1)
Quarter: 2025Q1

REPORT INFORMATION
  Report Type: Spontaneous
  Country: US (occurrence: US)
  Receive Date: 20250210
  Receipt Date: 20250210
  Transmission Date: 20250409
  Serious: No
  Sender: BIOMARIN
  Company Number: US-BIOMARINAP-US-2025-163673

PATIENT

DRUGS (2)
  1. PALYNZIQ [Suspect]
     Active Substance: PEGVALIASE-PQPZ
     Indication: Product used for unknown indication
     Dosage: 10 MILLIGRAM, QD
     Route: 058
  2. PALYNZIQ [Suspect]
     Active Substance: PEGVALIASE-PQPZ
     Route: 058
     Dates: start: 20241130

REACTIONS (5)
  - Pain in jaw [Unknown]
  - Injection site reaction [Recovering/Resolving]
  - Injection site pruritus [Recovering/Resolving]
  - Injection site pain [Recovering/Resolving]
  - Arthralgia [Recovered/Resolved]
